FAERS Safety Report 7986881-3 (Version None)
Quarter: 2011Q4

REPORT INFORMATION
  Report Type: 
  Country: None (occurrence: None)
  Receive Date: 20111216
  Receipt Date: 20111128
  Transmission Date: 20120403
  Serious: Yes (Hospitalization)
  Sender: FDA-Public Use
  Company Number: VE-TEVA-312163ISR

PATIENT
  Age: 38 Year
  Sex: Male

DRUGS (6)
  1. IBUPROFEN [Suspect]
     Indication: ASTHENIA
  2. CEFADROXIL [Suspect]
     Indication: DYSPHAGIA
  3. IBUPROFEN [Suspect]
     Indication: DYSPHAGIA
  4. CEFADROXIL [Suspect]
     Indication: ODYNOPHAGIA
  5. IBUPROFEN [Suspect]
     Indication: ODYNOPHAGIA
  6. CEFADROXIL [Suspect]
     Indication: ASTHENIA

REACTIONS (1)
  - TOXIC EPIDERMAL NECROLYSIS [None]
